FAERS Safety Report 20319307 (Version 3)
Quarter: 2022Q1

REPORT INFORMATION
  Report Type: Spontaneous
  Country: DE (occurrence: DE)
  Receive Date: 20220110
  Receipt Date: 20220308
  Transmission Date: 20220423
  Serious: Yes (Hospitalization, Other)
  Sender: FDA-Public Use
  Company Number: DE-NOVARTISPH-NVSC2022DE001676

PATIENT
  Age: 13 Year
  Sex: Female
  Weight: 59 kg

DRUGS (2)
  1. ILARIS [Suspect]
     Active Substance: CANAKINUMAB
     Indication: Still^s disease
     Dosage: 4 MG/KG, EVERY 4 WEEKS
     Route: 058
     Dates: start: 20211012, end: 20211118
  2. ILARIS [Suspect]
     Active Substance: CANAKINUMAB
     Dosage: 150 MG, EVERY 4 WEEKS
     Route: 065
     Dates: start: 202111, end: 202112

REACTIONS (6)
  - Ileus paralytic [Recovered/Resolved]
  - Abdominal discomfort [Recovered/Resolved]
  - Vomiting [Recovered/Resolved]
  - Faecal calprotectin increased [Recovered/Resolved]
  - Crohn^s disease [Recovered/Resolved with Sequelae]
  - Infection [Recovered/Resolved]

NARRATIVE: CASE EVENT DATE: 20211201
